FAERS Safety Report 20616770 (Version 2)
Quarter: 2022Q2

REPORT INFORMATION
  Report Type: Spontaneous
  Country: US (occurrence: US)
  Receive Date: 20220321
  Receipt Date: 20220405
  Transmission Date: 20220721
  Serious: No
  Sender: FDA-Public Use
  Company Number: US-AMGEN-USASP2022043766

PATIENT
  Age: 74 Year
  Sex: Female

DRUGS (3)
  1. PROLIA [Suspect]
     Active Substance: DENOSUMAB
     Indication: Osteoporosis postmenopausal
     Dosage: 60 MILLIGRAM, Q6MO
     Route: 065
     Dates: start: 20210510
  2. CORTISONE [Concomitant]
     Active Substance: CORTISONE
     Indication: Skin laceration
     Route: 065
  3. BIOFLEX [ACECLOFENAC] [Concomitant]

REACTIONS (3)
  - Muscle twitching [Recovering/Resolving]
  - Ligament sprain [Unknown]
  - Arthritis [Not Recovered/Not Resolved]

NARRATIVE: CASE EVENT DATE: 20220201
